FAERS Safety Report 6112616-5 (Version None)
Quarter: 2009Q1

REPORT INFORMATION
  Report Type: 
  Country: None (occurrence: None)
  Receive Date: 20090310
  Receipt Date: 20090224
  Transmission Date: 20090719
  Serious: Yes (Hospitalization)
  Sender: FDA-Public Use
  Company Number: 2009000519

PATIENT
  Age: 80 Year
  Sex: Male

DRUGS (17)
  1. ERLOTINIB (ERLOTINIB) (TABLET) (ERLOTINIB) [Suspect]
     Indication: NON-SMALL CELL LUNG CANCER
     Dosage: (150 MG, QD), ORAL
     Route: 048
     Dates: start: 20070921, end: 20071128
  2. BUDESONIDE [Concomitant]
  3. SPIRIVA [Concomitant]
  4. TORSEMIDE [Concomitant]
  5. SPIRONOLACTONE [Concomitant]
  6. SIMVASTATIN [Concomitant]
  7. METFORMIN HCL [Concomitant]
  8. LYRICA [Concomitant]
  9. METOCLOPRAMIDE [Concomitant]
  10. METAMIZOL (METAMIZOLE SODIUM) [Concomitant]
  11. NOVOPULMON (BUDESONIDE) [Concomitant]
  12. ESOMEPRAZOLE MAGNESIUM [Concomitant]
  13. VALSARTAN [Concomitant]
  14. XIPAMIDE (XIPAMIDE) [Concomitant]
  15. ACETYLSALICYLIC ACID SRT [Concomitant]
  16. METOCLOPRAMIDE HCL [Concomitant]
  17. NAFTIDROFURYL (NAFTIDROFURYL) [Concomitant]

REACTIONS (3)
  - CARDIAC FAILURE [None]
  - DERMATITIS [None]
  - RIGHT VENTRICULAR FAILURE [None]
